FAERS Safety Report 4662502-2 (Version None)
Quarter: 2005Q2

REPORT INFORMATION
  Report Type: 
  Country: None (occurrence: None)
  Receive Date: 20050516
  Receipt Date: 20050407
  Transmission Date: 20051028
  Serious: Yes (Hospitalization)
  Sender: FDA-Public Use
  Company Number: DK-ROCHE-401214

PATIENT
  Age: 54 Year
  Sex: Female

DRUGS (2)
  1. CAPECITABINE [Suspect]
     Indication: BREAST CANCER
     Dosage: 2900 (UNITS NOT PROVIDED)
     Route: 048
     Dates: start: 20041110
  2. IXABEPILONE [Suspect]
     Indication: BREAST CANCER
     Dosage: 61 (UNITS NOT PROVIDED)
     Route: 042
     Dates: start: 20041110

REACTIONS (4)
  - NEUTROPENIA [None]
  - PNEUMONIA [None]
  - RADIUS FRACTURE [None]
  - WRIST FRACTURE [None]
